FAERS Safety Report 8394788 (Version 4)
Quarter: 2012Q4

REPORT INFORMATION
  Report Type: 
  Country: US (occurrence: US)
  Receive Date: 20120207
  Receipt Date: 20121018
  Transmission Date: 20130627
  Serious: Yes (Hospitalization, Other)
  Sender: FDA-Public Use
  Company Number: US-009507513-1202USA00872

PATIENT

DRUGS (2)
  1. FOSAMAX [Suspect]
     Indication: OSTEOPOROSIS PROPHYLAXIS
     Dosage: 70 mg, UNK
     Route: 048
     Dates: start: 200504, end: 200809
  2. VITAMINS (UNSPECIFIED) [Concomitant]
     Dosage: UNK, qd
     Dates: start: 2000

REACTIONS (23)
  - Open reduction of fracture [Unknown]
  - Arthropathy [Unknown]
  - Atrial fibrillation [Unknown]
  - Pulmonary embolism [Unknown]
  - Knee arthroplasty [Unknown]
  - Hip arthroplasty [Unknown]
  - Femur fracture [Unknown]
  - Cardiac disorder [Unknown]
  - Bursitis [Unknown]
  - Postmenopausal haemorrhage [Unknown]
  - Glaucoma [Unknown]
  - Hypertension [Unknown]
  - Hyperlipidaemia [Unknown]
  - Osteoarthritis [Unknown]
  - Arthroscopy [Unknown]
  - Left atrial dilatation [Unknown]
  - Mass [Unknown]
  - Sick sinus syndrome [Unknown]
  - Fall [Unknown]
  - Bursa disorder [Unknown]
  - Gait disturbance [Unknown]
  - Bursitis [Unknown]
  - Oedema peripheral [Unknown]
